FAERS Safety Report 7882675-8 (Version None)
Quarter: 2011Q4

REPORT INFORMATION
  Report Type: 
  Country: None (occurrence: None)
  Receive Date: 20111101
  Receipt Date: 20110617
  Transmission Date: 20120403
  Serious: No
  Sender: FDA-Public Use
  Company Number: US-AMGEN-USASP2011031390

PATIENT
  Sex: Male

DRUGS (2)
  1. ENBREL [Suspect]
     Indication: FIBROMYALGIA
  2. ENBREL [Suspect]
     Indication: ANKYLOSING SPONDYLITIS
     Dosage: 50 MG, QWK
     Dates: start: 20091208, end: 20110101

REACTIONS (12)
  - PAIN IN EXTREMITY [None]
  - ARTHRALGIA [None]
  - BACK PAIN [None]
  - SINUSITIS [None]
  - NECK PAIN [None]
  - DRUG INEFFECTIVE [None]
  - BONE PAIN [None]
  - TENDON PAIN [None]
  - MUSCULOSKELETAL STIFFNESS [None]
  - FATIGUE [None]
  - WALKING AID USER [None]
  - EXOSTOSIS [None]
